FAERS Safety Report 8966746 (Version 3)
Quarter: 2013Q2

REPORT INFORMATION
  Report Type: Spontaneous
  Country: US (occurrence: US)
  Receive Date: 20121214
  Receipt Date: 20130410
  Transmission Date: 20140414
  Serious: No
  Sender: FDA-Public Use
  Company Number: US-009507513-1212USA004722

PATIENT
  Sex: Male
  Weight: 96.15 kg

DRUGS (3)
  1. VICTRELIS [Suspect]
     Indication: HEPATITIS C
     Dosage: 4 DF, EVERY 7-9 HOURS
     Route: 048
     Dates: start: 20120516
  2. RIBASPHERE [Suspect]
     Indication: HEPATITIS C
     Dosage: 600 (UNITS NOT PROVIDED), QD
     Route: 048
     Dates: start: 20120416, end: 20130205
  3. PEGASYS [Suspect]
     Indication: HEPATITIS C
     Dosage: 180 (UNITS NOT PROVIDED),QD
     Route: 058
     Dates: start: 20120416, end: 20130205

REACTIONS (1)
  - Rash pruritic [Recovered/Resolved]
